FAERS Safety Report 21512354 (Version 2)
Quarter: 2022Q4

REPORT INFORMATION
  Report Type: Spontaneous
  Country: BE (occurrence: BE)
  Receive Date: 20221027
  Receipt Date: 20221028
  Transmission Date: 20230113
  Serious: Yes (Other)
  Sender: FDA-Public Use
  Company Number: BE-LEO Pharma-346260

PATIENT
  Age: 62 Year
  Sex: Female

DRUGS (3)
  1. DEVICE [Suspect]
     Active Substance: DEVICE
     Indication: Eczema
  2. ADBRY [Suspect]
     Active Substance: TRALOKINUMAB-LDRM
     Indication: Eczema
     Dosage: DOSAGE : 600?MG (4 X 150MG), THEN 300?MG (2 X 150?MG) EVERY 2 WEEKS
     Route: 058
     Dates: start: 20220211
  3. ADBRY [Suspect]
     Active Substance: TRALOKINUMAB-LDRM
     Indication: Eczema
     Dosage: DOSAGE : 600?MG (4 X 150MG), THEN 300?MG (2 X 150?MG) EVERY 2 WEEKS
     Route: 058
     Dates: start: 20220211

REACTIONS (3)
  - Brain neoplasm [Unknown]
  - Amnesia [Unknown]
  - Amnesia [Unknown]

NARRATIVE: CASE EVENT DATE: 20220301
